FAERS Safety Report 5597488-X (Version None)
Quarter: 2008Q1

REPORT INFORMATION
  Report Type: 
  Country: None (occurrence: None)
  Receive Date: 20080121
  Receipt Date: 20080109
  Transmission Date: 20080703
  Serious: Yes (Other)
  Sender: FDA-Public Use
  Company Number: PHHY2008BR00556

PATIENT
  Age: 70 Year
  Sex: Female
  Weight: 74 kg

DRUGS (8)
  1. GALVUS MET [Suspect]
     Indication: DIABETES MELLITUS
  2. GLIFAGE [Concomitant]
     Indication: DIABETES MELLITUS
     Dosage: 850 MG, QD
     Route: 048
  3. SUSTRATE [Concomitant]
     Indication: PROMOTION OF PERIPHERAL CIRCULATION
     Dosage: UNK, BID
     Route: 048
     Dates: start: 20060101
  4. ASPIRIN [Concomitant]
     Indication: PROMOTION OF PERIPHERAL CIRCULATION
     Dosage: UNK, QD
     Dates: start: 20060101
  5. REMINYL [Concomitant]
     Indication: DEMENTIA ALZHEIMER'S TYPE
     Dosage: 8 MG
     Route: 048
     Dates: start: 20060101
  6. ACETAMINOPHEN [Concomitant]
     Indication: PYREXIA
     Route: 048
  7. VISKALDIX [Concomitant]
     Indication: BLOOD PRESSURE
     Dosage: UNK, QD
     Route: 048
     Dates: start: 20000101
  8. GALVUS [Concomitant]
     Dosage: 100 MG, UNK

REACTIONS (12)
  - APPETITE DISORDER [None]
  - ASTHENIA [None]
  - DIARRHOEA [None]
  - FEELING COLD [None]
  - HEART RATE INCREASED [None]
  - HYPERTENSION [None]
  - HYPOGLYCAEMIA [None]
  - MUSCULAR WEAKNESS [None]
  - PALLOR [None]
  - PYREXIA [None]
  - ROTAVIRUS TEST POSITIVE [None]
  - SENSATION OF HEAVINESS [None]
